FAERS Safety Report 8491500-6 (Version None)
Quarter: 2012Q2

REPORT INFORMATION
  Report Type: 
  Country: None (occurrence: None)
  Receive Date: 20120627
  Receipt Date: 20120619
  Transmission Date: 20120825
  Serious: Yes (Death)
  Sender: FDA-Public Use
  Company Number: JPI-P-022230

PATIENT
  Age: 46 Year
  Sex: Male

DRUGS (6)
  1. TRAZODONE HYDROCHLORIDE [Concomitant]
  2. XYREM [Suspect]
     Indication: SLEEP DISORDER
     Dosage: ,ORAL, 9 GM (4.5 GM,2 IN 1 D),ORAL
     Route: 048
     Dates: start: 20090601
  3. XYREM [Suspect]
     Indication: SLEEP DISORDER
     Dosage: ,ORAL, 9 GM (4.5 GM,2 IN 1 D),ORAL
     Route: 048
     Dates: start: 20051215, end: 20080512
  4. 5-HYDROXYTRYPTOPHAN [Concomitant]
  5. ESZOPICLONE [Concomitant]
  6. TIAGABINE HCL [Concomitant]

REACTIONS (1)
  - ACCIDENTAL OVERDOSE [None]
